FAERS Safety Report 8484301-6 (Version None)
Quarter: 2012Q2

REPORT INFORMATION
  Report Type: 
  Country: None (occurrence: None)
  Receive Date: 20120625
  Receipt Date: 20120608
  Transmission Date: 20120825
  Serious: Yes (Other)
  Sender: FDA-Public Use
  Company Number: 84946

PATIENT
  Age: 64 Year
  Sex: Female
  Weight: 61.2356 kg

DRUGS (3)
  1. ZOCOR 10 MG 1X/DAY [Concomitant]
  2. BENZOCAINE 20%, REDCROSS CANKER SORE ORAL ANESTHETIC [Suspect]
     Indication: GINGIVAL PAIN
     Dosage: 1X, TOPICAL ORAL
     Route: 061
     Dates: start: 20120603
  3. BENZOCAINE 20%, REDCROSS CANKER SORE ORAL ANESTHETIC [Suspect]
     Indication: APHTHOUS STOMATITIS
     Dosage: 1X, TOPICAL ORAL
     Route: 061
     Dates: start: 20120603

REACTIONS (4)
  - BLISTER [None]
  - PURULENCE [None]
  - OEDEMA MOUTH [None]
  - CHEMICAL BURN OF GASTROINTESTINAL TRACT [None]
